FAERS Safety Report 5635339-5 (Version None)
Quarter: 2008Q1

REPORT INFORMATION
  Report Type: 
  Country: None (occurrence: None)
  Receive Date: 20080222
  Receipt Date: 20080212
  Transmission Date: 20080703
  Serious: Yes (Other)
  Sender: FDA-Public Use
  Company Number: CH-PFIZER INC-2008013392

PATIENT
  Sex: Male
  Weight: 80 kg

DRUGS (5)
  1. LYRICA [Suspect]
     Indication: SCIATICA
     Route: 048
     Dates: start: 20080104, end: 20080108
  2. ASPIRIN [Concomitant]
     Route: 048
  3. OLFEN [Concomitant]
     Route: 048
  4. PRADIF [Concomitant]
     Route: 048
  5. LANSOPRAZOLE [Concomitant]
     Route: 048

REACTIONS (4)
  - ABASIA [None]
  - ATAXIA [None]
  - CONFUSIONAL STATE [None]
  - COORDINATION ABNORMAL [None]
